FAERS Safety Report 20380136 (Version 1)
Quarter: 2022Q1

REPORT INFORMATION
  Report Type: Report from Study
  Country: IL (occurrence: IL)
  Receive Date: 20220126
  Receipt Date: 20220126
  Transmission Date: 20220423
  Serious: Yes (Life-Threatening)
  Sender: FDA-Public Use
  Company Number: IL-ABBVIE-21K-082-4048073-00

PATIENT
  Age: 62 Year
  Sex: Female
  Weight: 60 kg

DRUGS (8)
  1. UPADACITINIB [Suspect]
     Active Substance: UPADACITINIB
     Indication: Rheumatoid arthritis
     Route: 048
     Dates: end: 20220120
  2. ZOSTAVAX [Concomitant]
     Active Substance: VARICELLA-ZOSTER VIRUS STRAIN OKA/MERCK LIVE ANTIGEN
     Indication: Prophylaxis
     Dates: start: 20190703, end: 20190703
  3. STREPTOCOCCUS PNEUMONIAE [Concomitant]
     Indication: Prophylaxis
     Dates: start: 20180221, end: 20180221
  4. STREPTOCOCCUS PNEUMONIAE [Concomitant]
     Dates: start: 20190611, end: 20190611
  5. COVID-19 VACCINE [Concomitant]
     Indication: COVID-19 immunisation
     Dosage: FIRST DOSE
     Route: 030
     Dates: start: 20201229, end: 20201229
  6. COVID-19 VACCINE [Concomitant]
     Dosage: SECOND DOSE
     Route: 030
     Dates: start: 20210119, end: 20210119
  7. INFLUENZA VIRUS VACCINE [Concomitant]
     Active Substance: INFLUENZA VIRUS VACCINE
     Indication: Product used for unknown indication
     Dates: start: 20211025, end: 20211025
  8. SARS-COV-2 VACCINE [Concomitant]
     Indication: Product used for unknown indication
     Dates: start: 20210808, end: 20210808

REACTIONS (2)
  - Hodgkin^s disease [Not Recovered/Not Resolved]
  - Upper respiratory tract infection [Not Recovered/Not Resolved]

NARRATIVE: CASE EVENT DATE: 20210701
